FAERS Safety Report 4656657-3 (Version None)
Quarter: 2005Q2

REPORT INFORMATION
  Report Type: 
  Country: None (occurrence: None)
  Receive Date: 20050331
  Receipt Date: 20041012
  Transmission Date: 20051028
  Serious: No
  Sender: FDA-Public Use
  Company Number: US095101

PATIENT
  Age: 42 Year
  Sex: Female

DRUGS (3)
  1. NEULASTA [Suspect]
     Indication: CHEMOTHERAPY
     Dosage: 6 MG
     Dates: start: 20040923
  2. DOXORUBICIN HYDROCHLORIDE [Concomitant]
  3. CYCLOPHOSPHAMIDE [Concomitant]

REACTIONS (2)
  - LYMPHOEDEMA [None]
  - MYALGIA [None]
